FAERS Safety Report 8508449-2 (Version None)
Quarter: 2012Q3

REPORT INFORMATION
  Report Type: 
  Country: None (occurrence: None)
  Receive Date: 20120713
  Receipt Date: 20120703
  Transmission Date: 20120928
  Serious: Yes (Hospitalization, Disabling)
  Sender: FDA-Public Use
  Company Number: US-VALEANT-2012VX001041

PATIENT
  Age: 73 Year
  Sex: Male
  Weight: 89 kg

DRUGS (4)
  1. FINASTERIDE [Concomitant]
     Indication: PROSTATIC DISORDER
     Route: 048
     Dates: start: 20050101
  2. SYNTHROID [Concomitant]
     Indication: THYROID DISORDER
     Route: 048
     Dates: start: 19690101
  3. CATAPRES [Concomitant]
     Indication: BLOOD PRESSURE
     Route: 065
  4. EDECRIN [Suspect]
     Indication: HYPERTENSION
     Route: 048
     Dates: start: 20120323, end: 20120323

REACTIONS (10)
  - OTOTOXICITY [None]
  - INNER EAR DISORDER [None]
  - ACTIVITIES OF DAILY LIVING IMPAIRED [None]
  - TOXICITY TO VARIOUS AGENTS [None]
  - HEADACHE [None]
  - EAR PAIN [None]
  - PALPITATIONS [None]
  - BALANCE DISORDER [None]
  - DIZZINESS [None]
  - VERTIGO [None]
